FAERS Safety Report 20873047 (Version 1)
Quarter: 2022Q2

REPORT INFORMATION
  Report Type: Spontaneous
  Country: CN (occurrence: CN)
  Receive Date: 20220525
  Receipt Date: 20220525
  Transmission Date: 20220721
  Serious: Yes (Other)
  Sender: FDA-Public Use
  Company Number: CN-PFIZER INC-202200727140

PATIENT
  Age: 4 Year
  Sex: Male
  Weight: 16 kg

DRUGS (5)
  1. METHOTREXATE [Suspect]
     Active Substance: METHOTREXATE
     Indication: Chemotherapy
     Dosage: 3.3 G, 1X/DAY
     Route: 042
     Dates: start: 20220426, end: 20220426
  2. IFOSFAMIDE [Concomitant]
     Active Substance: IFOSFAMIDE
     Indication: Chemotherapy
     Dosage: 0.528 G, 2X/DAY
     Route: 042
     Dates: start: 20220426, end: 20220426
  3. VINDESINE SULFATE [Concomitant]
     Active Substance: VINDESINE SULFATE
     Indication: Chemotherapy
     Dosage: 1.98 MG, 1X/DAY
     Route: 042
     Dates: start: 20220426, end: 20220426
  4. MESNA [Concomitant]
     Active Substance: MESNA
     Indication: Therapeutic procedure
     Dosage: 0.2 G, 4X/DAY
     Route: 042
     Dates: start: 20220426, end: 20220429
  5. DEXAMETHASONE ACETATE [Concomitant]
     Active Substance: DEXAMETHASONE ACETATE
     Indication: Chemotherapy
     Dosage: 4.4 MG, 3X/DAY
     Route: 048
     Dates: start: 20220426, end: 20220429

REACTIONS (1)
  - Mucosal disorder [Recovering/Resolving]

NARRATIVE: CASE EVENT DATE: 20220429
